FAERS Safety Report 9849879 (Version 3)
Quarter: 2014Q1

REPORT INFORMATION
  Report Type: Spontaneous
  Country: IT (occurrence: IT)
  Receive Date: 20140128
  Receipt Date: 20140206
  Transmission Date: 20141002
  Serious: Yes (Other)
  Sender: FDA-Public Use
  Company Number: IT-PFIZER INC-2013344244

PATIENT
  Age: 47 Year
  Sex: Female

DRUGS (1)
  1. CISPLATINO TEVA [Suspect]
     Indication: OVARIAN CANCER RECURRENT
     Dosage: 110 MG, DAILY
     Route: 042
     Dates: start: 20131020, end: 20131126

REACTIONS (5)
  - Laryngeal discomfort [Recovered/Resolved]
  - Nasal congestion [Recovered/Resolved]
  - Pruritus [Recovered/Resolved]
  - Rash [Recovered/Resolved]
  - Vomiting [Recovered/Resolved]
